FAERS Safety Report 8344716-3 (Version None)
Quarter: 2012Q2

REPORT INFORMATION
  Report Type: 
  Country: None (occurrence: None)
  Receive Date: 20120508
  Receipt Date: 20120426
  Transmission Date: 20120825
  Serious: Yes (Hospitalization)
  Sender: FDA-Public Use
  Company Number: TW-ROCHE-1066447

PATIENT
  Sex: Female
  Weight: 50.35 kg

DRUGS (5)
  1. BLINDED ALISPORIVIR [Suspect]
     Indication: HEPATITIS C
     Route: 048
     Dates: start: 20110923
  2. COPEGUS [Suspect]
     Indication: HEPATITIS C
     Dates: start: 20110923, end: 20111023
  3. PEGASYS [Suspect]
     Indication: HEPATITIS C
     Route: 058
     Dates: start: 20110923
  4. ACETAMINOPHEN [Concomitant]
     Dates: start: 20110930, end: 20111112
  5. ESTAZOLAM [Concomitant]
     Dates: start: 20110930, end: 20111112

REACTIONS (3)
  - VERTIGO [None]
  - DIZZINESS [None]
  - ANAEMIA [None]
